FAERS Safety Report 8003531-0 (Version None)
Quarter: 2011Q4

REPORT INFORMATION
  Report Type: 
  Country: None (occurrence: None)
  Receive Date: 20111222
  Receipt Date: 20111213
  Transmission Date: 20120403
  Serious: Yes (Hospitalization)
  Sender: FDA-Public Use
  Company Number: FR-NAPPMUNDI-GBR-2011-0009219

PATIENT
  Age: 74 Year
  Sex: Female

DRUGS (10)
  1. ROCEPHIN [Suspect]
     Indication: URINARY TRACT INFECTION
     Dosage: UNK
     Route: 065
     Dates: start: 20111013, end: 20111026
  2. XANAX [Concomitant]
  3. AMIKACIN [Concomitant]
     Indication: URINARY TRACT INFECTION
     Dosage: UNK
     Dates: start: 20110911, end: 20110916
  4. NEXIUM [Concomitant]
  5. PIPERACILLIN AND TAZOBACTAM [Suspect]
     Indication: PELVIC DISCOMFORT
     Dosage: UNK
     Dates: start: 20111013, end: 20111016
  6. OXYCONTIN [Suspect]
     Indication: SCIATICA
     Dosage: UNK
     Route: 065
     Dates: start: 20111016, end: 20111026
  7. OFLOXACIN [Concomitant]
     Dosage: UNK
     Dates: start: 20110916, end: 20111001
  8. POTASSIUM CHLORIDE [Concomitant]
  9. VFEND [Concomitant]
  10. ROCEPHIN [Suspect]
     Dosage: UNK
     Route: 065
     Dates: start: 20111016, end: 20111026

REACTIONS (4)
  - PRURITUS [None]
  - RASH [None]
  - BURNING SENSATION [None]
  - ERYTHEMA [None]
